FAERS Safety Report 9318849 (Version 1)
Quarter: 2013Q2

REPORT INFORMATION
  Report Type: Spontaneous
  Country: IT (occurrence: None)
  Receive Date: 20130520
  Receipt Date: 20130520
  Transmission Date: 20140414
  Serious: Yes (Other)
  Sender: FDA-Public Use
  Company Number: 2013035795

PATIENT
  Age: 61 Year
  Sex: Female

DRUGS (2)
  1. IVIG (IMMUNE GLOBULIN INTRAVENOUS (HUMAN) 10 % LIQUID) [Suspect]
     Indication: RADICULOPATHY
     Route: 042
  2. STEROIDS (CORTICOSTEROIDS) [Suspect]
     Indication: RADICULOPATHY

REACTIONS (2)
  - B-cell lymphoma [None]
  - Drug ineffective for unapproved indication [None]
